FAERS Safety Report 13870935 (Version 1)
Quarter: 2017Q3

REPORT INFORMATION
  Report Type: Spontaneous
  Country: US (occurrence: None)
  Receive Date: 20170814
  Receipt Date: 20170814
  Transmission Date: 20171127
  Serious: No
  Sender: FDA-Public Use
  Company Number: None

PATIENT
  Sex: Female

DRUGS (1)
  1. MELPHALAN 2MG ALVOGEN [Suspect]
     Active Substance: MELPHALAN
     Indication: ACUTE MYELOID LEUKAEMIA
     Route: 048
     Dates: start: 20170802, end: 20170802

REACTIONS (2)
  - Product substitution issue [None]
  - Diarrhoea [None]
